FAERS Safety Report 22389074 (Version 1)
Quarter: 2023Q2

REPORT INFORMATION
  Report Type: Spontaneous
  Country: FR (occurrence: FR)
  Receive Date: 20230531
  Receipt Date: 20230531
  Transmission Date: 20230721
  Serious: Yes (Life-Threatening, Other)
  Sender: FDA-Public Use
  Company Number: FR-ELI_LILLY_AND_COMPANY-FR202305016634

PATIENT
  Age: 55 Year
  Sex: Female

DRUGS (7)
  1. GEMCITABINE HYDROCHLORIDE [Interacting]
     Active Substance: GEMCITABINE HYDROCHLORIDE
     Indication: Adenocarcinoma pancreas
     Dosage: 1000 MG/M2, CYCLICAL
     Route: 065
     Dates: start: 201811, end: 201905
  2. GEMCITABINE HYDROCHLORIDE [Interacting]
     Active Substance: GEMCITABINE HYDROCHLORIDE
     Dosage: 1500 MG/M2
     Route: 065
     Dates: start: 201908
  3. PACLITAXEL [Interacting]
     Active Substance: PACLITAXEL
     Indication: Adenocarcinoma pancreas
     Dosage: 125 MG/M2, CYCLICAL
     Route: 065
     Dates: start: 201811
  4. AMLODIPINE [Concomitant]
     Active Substance: AMLODIPINE BESYLATE
     Dosage: UNK UNK, UNKNOWN
     Route: 065
  5. IRBESARTAN [Concomitant]
     Active Substance: IRBESARTAN
     Dosage: UNK UNK, UNKNOWN
     Route: 065
  6. LABETALOL [Concomitant]
     Active Substance: LABETALOL\LABETALOL HYDROCHLORIDE
     Dosage: UNK UNK, UNKNOWN
     Route: 065
  7. LEVETIRACETAM [Concomitant]
     Active Substance: LEVETIRACETAM
     Dosage: UNK UNK, UNKNOWN
     Route: 065

REACTIONS (4)
  - Thrombotic microangiopathy [Not Recovered/Not Resolved]
  - Neuropathy peripheral [Unknown]
  - Drug interaction [Unknown]
  - Off label use [Unknown]

NARRATIVE: CASE EVENT DATE: 20181101
